FAERS Safety Report 10968425 (Version 2)
Quarter: 2015Q2

REPORT INFORMATION
  Report Type: Spontaneous
  Country: DE (occurrence: DE)
  Receive Date: 20150330
  Receipt Date: 20150506
  Transmission Date: 20150821
  Serious: Yes (Hospitalization, Disabling, Other)
  Sender: FDA-Public Use
  Company Number: DE-009507513-1503DEU012852

PATIENT
  Age: 66 Year
  Sex: Male
  Weight: 75 kg

DRUGS (1)
  1. INTRON A [Suspect]
     Active Substance: INTERFERON ALFA-2B
     Indication: MALIGNANT MELANOMA
     Dosage: 3 MILLION IU, TIW
     Dates: start: 201404, end: 20150109

REACTIONS (5)
  - Deafness bilateral [Not Recovered/Not Resolved]
  - General physical health deterioration [Recovered/Resolved]
  - Vertigo [Unknown]
  - Tinnitus [Unknown]
  - Pneumonia [Unknown]

NARRATIVE: CASE EVENT DATE: 201411
